FAERS Safety Report 4617444-5 (Version None)
Quarter: 2005Q1

REPORT INFORMATION
  Report Type: 
  Country: None (occurrence: None)
  Receive Date: 20050324
  Receipt Date: 20050317
  Transmission Date: 20050727
  Serious: Yes (Hospitalization)
  Sender: FDA-Public Use
  Company Number: US-KINGPHARMUSA00001-K200500381

PATIENT
  Age: 49 Year
  Sex: Female

DRUGS (6)
  1. ALTACE [Suspect]
     Indication: HYPERTENSION
     Dosage: 7.5 MG, QD
     Route: 048
     Dates: end: 20050214
  2. DIFFU K [Suspect]
     Dosage: 1,200 MG, QD
     Route: 048
     Dates: end: 20050214
  3. ZOLOFT [Concomitant]
     Indication: DEPRESSION
     Dosage: 1 U, QD
     Route: 048
     Dates: end: 20050214
  4. DIAMICRON MR [Concomitant]
     Indication: DIABETES MELLITUS NON-INSULIN-DEPENDENT
     Dosage: 60 MG, UNK
     Route: 048
     Dates: end: 20050214
  5. NICARDIPINE HCL [Concomitant]
     Indication: HYPERTENSION
     Dosage: 100 MG, QD
     Route: 048
     Dates: end: 20050214
  6. SERESTA [Concomitant]
     Indication: DEPRESSION
     Dosage: 25 MG, QD
     Route: 048
     Dates: end: 20050214

REACTIONS (6)
  - ACUTE RESPIRATORY DISTRESS SYNDROME [None]
  - ANURIA [None]
  - HYPERKALAEMIA [None]
  - LUNG DISORDER [None]
  - RENAL FAILURE ACUTE [None]
  - SEPTIC SHOCK [None]
